FAERS Safety Report 5006024-8 (Version None)
Quarter: 2006Q2

REPORT INFORMATION
  Report Type: 
  Country: None (occurrence: None)
  Receive Date: 20060518
  Receipt Date: 20060509
  Transmission Date: 20061013
  Serious: Yes (Other)
  Sender: FDA-Public Use
  Company Number: JP-ABBOTT-06P-087-0332994-00

PATIENT
  Age: 31 Year
  Sex: Female

DRUGS (1)
  1. CLARITHROMYCIN [Suspect]
     Indication: DENTAL TREATMENT
     Route: 048
     Dates: start: 20051201, end: 20051201

REACTIONS (2)
  - DIZZINESS [None]
  - MALAISE [None]
